FAERS Safety Report 7969807-8 (Version None)
Quarter: 2011Q4

REPORT INFORMATION
  Report Type: 
  Country: None (occurrence: None)
  Receive Date: 20111212
  Receipt Date: 20111130
  Transmission Date: 20120403
  Serious: Yes (Other)
  Sender: FDA-Public Use
  Company Number: US-BAYER-201035518NA

PATIENT
  Age: 21 Year
  Sex: Female
  Weight: 44 kg

DRUGS (11)
  1. YASMIN [Suspect]
     Indication: ORAL CONTRACEPTION
     Dosage: UNK UNK, UNK
     Route: 048
     Dates: start: 20060201, end: 20080101
  2. RANITIDINE [Concomitant]
     Dosage: UNK
     Dates: start: 20080822, end: 20090305
  3. SUCRALFATE [Concomitant]
     Dosage: UNK
     Dates: start: 20080916
  4. HYDROCODONE BITARTRATE AND ACETAMINOPHEN [Concomitant]
     Dosage: UNK
     Dates: start: 20081007, end: 20081011
  5. FEXOFENADINE [Concomitant]
     Dosage: UNK
     Dates: start: 20090113, end: 20091210
  6. TPN [Concomitant]
     Dosage: UNK
     Dates: start: 20090911, end: 20091231
  7. BUPROPION HYDROCHLORIDE [Concomitant]
     Dosage: UNK
     Dates: start: 20090416, end: 20090616
  8. YAZ [Suspect]
     Indication: ORAL CONTRACEPTION
     Dosage: UNK UNK, UNK
     Route: 048
     Dates: start: 20080101, end: 20090701
  9. FLUOXETINE [Concomitant]
     Dosage: UNK
     Dates: start: 20081105
  10. NITROFURANTOIN [Concomitant]
     Dosage: UNK
     Dates: start: 20091110
  11. PREVACID [Concomitant]
     Indication: GASTROOESOPHAGEAL REFLUX DISEASE
     Dosage: UNK
     Dates: start: 20080401

REACTIONS (4)
  - DEPRESSION [None]
  - GALLBLADDER DISORDER [None]
  - MENTAL DISORDER [None]
  - CHOLECYSTITIS CHRONIC [None]
